FAERS Safety Report 6345517-8 (Version None)
Quarter: 2009Q3

REPORT INFORMATION
  Report Type: 
  Country: None (occurrence: None)
  Receive Date: 20090909
  Receipt Date: 20090810
  Transmission Date: 20100115
  Serious: No
  Sender: FDA-Public Use
  Company Number: US-BAYER-200913245BCC

PATIENT
  Age: 19 Year
  Sex: Male
  Weight: 77 kg

DRUGS (2)
  1. ALEVE [Suspect]
     Indication: RHINALGIA
     Dosage: HAS BEEN TAKING 4 TO 5 ALEVE EVERY 2 TO 3 HOURS SINCE THIS MORNING
     Route: 065
  2. BACTRIM [Concomitant]
     Route: 065

REACTIONS (3)
  - ANXIETY [None]
  - DISTURBANCE IN ATTENTION [None]
  - NERVOUSNESS [None]
